FAERS Safety Report 6342317-X (Version None)
Quarter: 2009Q3

REPORT INFORMATION
  Report Type: 
  Country: None (occurrence: None)
  Receive Date: 20090907
  Receipt Date: 20070607
  Transmission Date: 20100115
  Serious: Yes (Hospitalization, Other)
  Sender: FDA-Public Use
  Company Number: US-ASTRAZENECA-2006UW24159

PATIENT
  Age: 15060 Day
  Sex: Female
  Weight: 108.9 kg

DRUGS (8)
  1. SEROQUEL [Suspect]
     Indication: SCHIZOPHRENIA
     Route: 048
     Dates: start: 19980101
  2. SEROQUEL [Suspect]
     Indication: DEPRESSION
     Route: 048
     Dates: start: 19980101
  3. SEROQUEL [Suspect]
     Route: 048
     Dates: start: 20020628
  4. SEROQUEL [Suspect]
     Route: 048
     Dates: start: 20020628
  5. ZYPREXA [Concomitant]
     Route: 048
     Dates: start: 20040429
  6. INSULIN [Concomitant]
     Dosage: 70/30, 45 UNITS IN THE MORNING AND 30 UNITS IN THE EVENING
     Dates: start: 20040429
  7. METFORMIN HCL [Concomitant]
     Dosage: 500 MG BEFORE BREAKFAST AND BEFORE SUPPER
     Route: 048
     Dates: start: 20040429
  8. RISPERDAL [Concomitant]
     Dates: start: 20061019

REACTIONS (8)
  - DIABETES MELLITUS [None]
  - DIABETES MELLITUS INADEQUATE CONTROL [None]
  - DIABETES WITH HYPEROSMOLARITY [None]
  - DIABETIC COMA [None]
  - DIABETIC KETOACIDOSIS [None]
  - HYPERGLYCAEMIC HYPEROSMOLAR NONKETOTIC SYNDROME [None]
  - HYPOGLYCAEMIA [None]
  - TYPE 2 DIABETES MELLITUS [None]
